FAERS Safety Report 18285364 (Version 2)
Quarter: 2023Q2

REPORT INFORMATION
  Report Type: Spontaneous
  Country: GB (occurrence: GB)
  Receive Date: 20200918
  Receipt Date: 20230623
  Transmission Date: 20230721
  Serious: Yes (Disabling, Other)
  Sender: FDA-Public Use
  Company Number: None

PATIENT
  Age: 68 Year
  Sex: Male

DRUGS (3)
  1. AFLIBERCEPT [Suspect]
     Active Substance: AFLIBERCEPT
     Indication: Neovascular age-related macular degeneration
     Dosage: UNK UNK, QD
     Route: 050
     Dates: start: 20200728, end: 20200728
  2. BENOXINATE HYDROCHLORIDE [Concomitant]
     Active Substance: BENOXINATE HYDROCHLORIDE
     Indication: Local anaesthesia
     Dosage: 0.5 ML, QD
     Route: 061
     Dates: start: 20200728, end: 20200728
  3. POVIDONE-IODINE [Concomitant]
     Active Substance: POVIDONE-IODINE
     Indication: Infection prophylaxis
     Dosage: 0.4 ML, QD
     Route: 061
     Dates: start: 20200728, end: 20200728

REACTIONS (5)
  - Iridocyclitis [Recovered/Resolved with Sequelae]
  - Eye pain [Recovering/Resolving]
  - Corneal oedema [Recovering/Resolving]
  - Vision blurred [Not Recovered/Not Resolved]
  - Anterior chamber cell [Unknown]

NARRATIVE: CASE EVENT DATE: 20200728
